FAERS Safety Report 5673632-0 (Version None)
Quarter: 2008Q2

REPORT INFORMATION
  Report Type: 
  Country: None (occurrence: None)
  Receive Date: 20080225
  Receipt Date: 20070112
  Transmission Date: 20081010
  Serious: Yes (Hospitalization, Other)
  Sender: FDA-Public Use
  Company Number: WAES 0606USA03179

PATIENT
  Age: 70 Year
  Sex: Male

DRUGS (1)
  1. ZOCOR [Suspect]
     Dosage: PO
     Route: 048
     Dates: start: 20030301, end: 20031201

REACTIONS (7)
  - ADRENAL ADENOMA [None]
  - CORONARY ARTERY DISEASE [None]
  - MYOPATHY [None]
  - PERIPHERAL VASCULAR DISORDER [None]
  - PRURITUS [None]
  - RASH [None]
  - RHABDOMYOLYSIS [None]
